FAERS Safety Report 10210287 (Version 7)
Quarter: 2015Q2

REPORT INFORMATION
  Report Type: Spontaneous
  Country: US (occurrence: US)
  Receive Date: 20140602
  Receipt Date: 20150624
  Transmission Date: 20150821
  Serious: Yes (Hospitalization, Congenital Anomaly, Other)
  Sender: FDA-Public Use
  Company Number: US-ELI_LILLY_AND_COMPANY-US201405008607

PATIENT

DRUGS (5)
  1. AMPICILLIN [Concomitant]
     Active Substance: AMPICILLIN
     Route: 064
  2. PROZAC [Suspect]
     Active Substance: FLUOXETINE HYDROCHLORIDE
     Indication: PRODUCT USED FOR UNKNOWN INDICATION
     Dosage: UNK, UNKNOWN
     Route: 064
  3. PITOCIN [Concomitant]
     Active Substance: OXYTOCIN
     Route: 064
  4. PHENERGAN [Concomitant]
     Active Substance: PROMETHAZINE HYDROCHLORIDE
     Route: 064
  5. STADOL [Concomitant]
     Active Substance: BUTORPHANOL TARTRATE
     Route: 064

REACTIONS (10)
  - Atelectasis [Unknown]
  - Ventricular septal defect [Recovered/Resolved]
  - Persistent left superior vena cava [Unknown]
  - Mediastinal shift [Unknown]
  - Cardiac murmur [Unknown]
  - Pulmonary oedema [Unknown]
  - Subvalvular aortic stenosis [Recovered/Resolved]
  - Exposure during breast feeding [Unknown]
  - Pleural effusion [Unknown]
  - Foetal exposure during pregnancy [Unknown]
